FAERS Safety Report 9916313 (Version 2)
Quarter: 2014Q1

REPORT INFORMATION
  Report Type: Spontaneous
  Country: GB (occurrence: None)
  Receive Date: 20140219
  Receipt Date: 20140224
  Transmission Date: 20141002
  Serious: Yes (Hospitalization)
  Sender: FDA-Public Use
  Company Number: AUR-APL-2014-01698

PATIENT
  Age: 67 Year
  Sex: Male
  Weight: 91 kg

DRUGS (12)
  1. BISOPROLOL [Suspect]
     Indication: DIFFUSE LARGE B-CELL LYMPHOMA
  2. CYCLOPHOSPHAMIDE (CYCLOPHOSPHAMIDE) [Suspect]
     Indication: DIFFUSE LARGE B-CELL LYMPHOMA
     Dates: start: 20130916, end: 20130916
  3. DOXORUBICIN [Suspect]
     Indication: DIFFUSE LARGE B-CELL LYMPHOMA
     Dates: start: 20130916, end: 20130916
  4. PREDNISOLONE (PREDNISOLONE) [Suspect]
     Indication: DIFFUSE LARGE B-CELL LYMPHOMA
     Dates: start: 20130916, end: 20130920
  5. RITUXIMAB (RITUXIMAB) [Suspect]
     Indication: DIFFUSE LARGE B-CELL LYMPHOMA
     Dates: start: 20130916, end: 20130916
  6. VINCRISTINE [Suspect]
     Indication: DIFFUSE LARGE B-CELL LYMPHOMA
     Dates: start: 20130916, end: 20130916
  7. ALLOPURINOL (ALLOPURINOL) [Concomitant]
  8. DOMPERIDONE (DOMPERIDONE) [Concomitant]
  9. ESOMEPRAZOLE (ESOMEPRAZOLE) [Concomitant]
  10. FILGRASTIM (FILGRASTIM) [Concomitant]
  11. MACROGOL (MACROGOL) [Concomitant]
  12. MOVICOL (POLYETHYL. GLYC. W/POTAS. CHLOR./SOD. BICARB.) [Concomitant]

REACTIONS (9)
  - Hypotension [None]
  - Neutropenic sepsis [None]
  - Atrial flutter [None]
  - Bundle branch block right [None]
  - Dizziness [None]
  - Pallor [None]
  - Cold sweat [None]
  - Malaise [None]
  - Ejection fraction [None]
